FAERS Safety Report 4555294-9 (Version None)
Quarter: 2005Q1

REPORT INFORMATION
  Report Type: 
  Country: None (occurrence: None)
  Receive Date: 20041227
  Receipt Date: 20040525
  Transmission Date: 20050727
  Serious: No
  Sender: FDA-Public Use
  Company Number: US077758

PATIENT
  Age: 84 Year

DRUGS (1)
  1. ARANESP [Suspect]
     Indication: MYELODYSPLASTIC SYNDROME
     Dosage: 300 MCG, 1 IN 2 WEEKS
     Dates: start: 20040301

REACTIONS (2)
  - HAEMOGLOBIN DECREASED [None]
  - TRANSIENT ISCHAEMIC ATTACK [None]
